FAERS Safety Report 12177464 (Version 2)
Quarter: 2016Q1

REPORT INFORMATION
  Report Type: Spontaneous
  Country: JP (occurrence: JP)
  Receive Date: 20160314
  Receipt Date: 20160329
  Transmission Date: 20160526
  Serious: Yes (Hospitalization)
  Sender: FDA-Public Use
  Company Number: JP-009507513-1603JPN004473

PATIENT

DRUGS (2)
  1. RECALBON [Suspect]
     Active Substance: MINODRONIC ACID
     Dosage: 1 MG, DAILY
     Route: 048
  2. BONALON [Suspect]
     Active Substance: ALENDRONATE SODIUM
     Dosage: 35 MG, WEEKLY
     Route: 048

REACTIONS (1)
  - Fracture [Not Recovered/Not Resolved]
